FAERS Safety Report 21783956 (Version 3)
Quarter: 2023Q1

REPORT INFORMATION
  Report Type: Spontaneous
  Country: US (occurrence: US)
  Receive Date: 20221227
  Receipt Date: 20230123
  Transmission Date: 20230418
  Serious: Yes (Other)
  Sender: FDA-Public Use
  Company Number: US-BAYER-2022A175289

PATIENT
  Age: 23 Year
  Sex: Male

DRUGS (3)
  1. KOVALTRY [Suspect]
     Active Substance: ANTIHEMOPHILIC FACTOR, HUMAN RECOMBINANT
     Dosage: 3500 IU
     Route: 042
  2. KOVALTRY [Suspect]
     Active Substance: ANTIHEMOPHILIC FACTOR, HUMAN RECOMBINANT
     Dosage: 2 DF, FOR THE LEFT HAND FINGER BLEED AND BACK INJURY TREATMENT
     Route: 042
     Dates: start: 202211, end: 202211
  3. KOVALTRY [Suspect]
     Active Substance: ANTIHEMOPHILIC FACTOR, HUMAN RECOMBINANT
     Dosage: 1 DF, TO TREAT LEFT HAND BLEED
     Dates: start: 202212, end: 202212

REACTIONS (4)
  - Traumatic haemorrhage [Recovered/Resolved]
  - Muscle haemorrhage [None]
  - Haemorrhage [Recovered/Resolved]
  - Back injury [None]

NARRATIVE: CASE EVENT DATE: 20221101
